FAERS Safety Report 15729961 (Version 1)
Quarter: 2018Q4

REPORT INFORMATION
  Report Type: Spontaneous
  Country: CA (occurrence: CA)
  Receive Date: 20181217
  Receipt Date: 20181217
  Transmission Date: 20190205
  Serious: Yes (Death, Other)
  Sender: FDA-Public Use
  Company Number: CA-BTG-201800170

PATIENT
  Age: 44 Year
  Sex: Male

DRUGS (2)
  1. DIGIFAB [Suspect]
     Active Substance: OVINE DIGOXIN IMMUNE FAB
     Indication: TOXICITY TO VARIOUS AGENTS
  2. AMIODARONE [Concomitant]
     Active Substance: AMIODARONE
     Indication: VENTRICULAR TACHYARRHYTHMIA
     Route: 042

REACTIONS (3)
  - Brain injury [Fatal]
  - Off label use [Unknown]
  - Drug ineffective for unapproved indication [Unknown]
